FAERS Safety Report 15485818 (Version 2)
Quarter: 2018Q4

REPORT INFORMATION
  Report Type: Report from Study
  Country: None (occurrence: BR)
  Receive Date: 20181010
  Receipt Date: 20181018
  Transmission Date: 20190205
  Serious: Yes (Hospitalization)
  Sender: FDA-Public Use
  Company Number: BR-ABBVIE-18K-020-2514697-00

PATIENT
  Age: 74 Year
  Sex: Male
  Weight: 95 kg

DRUGS (7)
  1. MAXAPRAN [Concomitant]
     Indication: PRODUCT USED FOR UNKNOWN INDICATION
  2. HUMIRA [Suspect]
     Active Substance: ADALIMUMAB
     Indication: CROHN^S DISEASE
     Dosage: LOADING DOSE?WEEK 0
     Route: 058
     Dates: start: 20180926, end: 20180926
  3. STANGLIT [Concomitant]
     Active Substance: PIOGLITAZONE HYDROCHLORIDE
     Indication: DIABETES MELLITUS
  4. HUMIRA [Suspect]
     Active Substance: ADALIMUMAB
     Dosage: LOADING DOSE?WEEK 1
     Route: 058
     Dates: start: 2018, end: 2018
  5. LEVOTHYROXINE SODIUM. [Concomitant]
     Active Substance: LEVOTHYROXINE SODIUM
     Indication: THYROID DISORDER
  6. ASPIRINA PREVENT [Concomitant]
     Active Substance: ASPIRIN
     Indication: PRODUCT USED FOR UNKNOWN INDICATION
  7. DIOVAN AMLO FIX [Concomitant]
     Active Substance: AMLODIPINE\VALSARTAN
     Indication: HYPERTENSION
     Dosage: 320MG + 25MG

REACTIONS (6)
  - Crohn^s disease [Recovered/Resolved]
  - Daydreaming [Recovered/Resolved]
  - Hypertension [Recovered/Resolved]
  - Feeling abnormal [Recovered/Resolved]
  - Malaise [Recovered/Resolved]
  - Abdominal pain [Recovered/Resolved]

NARRATIVE: CASE EVENT DATE: 20181003
